FAERS Safety Report 5279894-6 (Version None)
Quarter: 2007Q1

REPORT INFORMATION
  Report Type: 
  Country: None (occurrence: None)
  Receive Date: 20070322
  Receipt Date: 20070309
  Transmission Date: 20070707
  Serious: Yes (Death, Hospitalization)
  Sender: FDA-Public Use
  Company Number: 2007SP004686

PATIENT
  Age: 72 Year
  Sex: Male
  Weight: 52.5 kg

DRUGS (6)
  1. TEMOZOLOMIDE (S-P)  (TEMOZOLOMIDE) [Suspect]
     Indication: METASTATIC MALIGNANT MELANOMA
     Dosage: 320 MG;QD;PO
     Route: 048
     Dates: start: 20050822, end: 20050826
  2. AG-014699 (INVESTIGATIONAL DRUG) [Suspect]
     Indication: METASTATIC MALIGNANT MELANOMA
     Dosage: 19 MG;QD;IV
     Route: 042
     Dates: start: 20050822, end: 20050826
  3. ASPIRIN [Concomitant]
  4. FERROUS SULFATE TAB [Concomitant]
  5. TEMAZEPAM [Concomitant]
  6. SENNA [Concomitant]

REACTIONS (6)
  - ACTIVITIES OF DAILY LIVING IMPAIRED [None]
  - CANDIDIASIS [None]
  - DYSPNOEA [None]
  - GENERAL PHYSICAL HEALTH DETERIORATION [None]
  - NEUTROPENIC SEPSIS [None]
  - PANCYTOPENIA [None]
